FAERS Safety Report 7770563-7 (Version None)
Quarter: 2011Q3

REPORT INFORMATION
  Report Type: 
  Country: None (occurrence: None)
  Receive Date: 20110922
  Receipt Date: 20110913
  Transmission Date: 20111222
  Serious: Yes (Hospitalization)
  Sender: FDA-Public Use
  Company Number: PHFR2011IE05366

PATIENT
  Sex: Male

DRUGS (3)
  1. ANTIPSYCHOTICS [Concomitant]
     Route: 030
  2. CLOZAPINE [Suspect]
     Dosage: 750 MG
     Route: 048
     Dates: start: 20110911
  3. CLOZAPINE [Suspect]
     Indication: SCHIZOPHRENIA
     Dosage: 750 MG
     Route: 048
     Dates: start: 20021227

REACTIONS (3)
  - BLOOD CREATINE PHOSPHOKINASE INCREASED [None]
  - SOMNOLENCE [None]
  - INCORRECT DOSE ADMINISTERED [None]
